FAERS Safety Report 25649587 (Version 1)
Quarter: 2025Q3

REPORT INFORMATION
  Report Type: Spontaneous
  Country: US (occurrence: US)
  Receive Date: 20250806
  Receipt Date: 20250806
  Transmission Date: 20251020
  Serious: No
  Sender: BAYER HEALTHCARE LLC
  Company Number: US-BAYER-2025A102309

PATIENT
  Sex: Male

DRUGS (1)
  1. MIRALAX [Suspect]
     Active Substance: POLYETHYLENE GLYCOL 3350
     Indication: Bowel movement irregularity
     Dosage: 0.5 T / 1-2 TEASPOONS, SO NOT ALOT
     Route: 048

REACTIONS (1)
  - Incorrect dose administered [Unknown]
